FAERS Safety Report 19497476 (Version 2)
Quarter: 2021Q3

REPORT INFORMATION
  Report Type: Spontaneous
  Country: US (occurrence: US)
  Receive Date: 20210706
  Receipt Date: 20210708
  Transmission Date: 20211014
  Serious: No
  Sender: FDA-Public Use
  Company Number: US-SA-2021SA219750

PATIENT
  Age: 60 Year
  Sex: Female

DRUGS (5)
  1. KEVZARA [Suspect]
     Active Substance: SARILUMAB
     Indication: NEUTROPENIA
     Dosage: 200 MG, QOW
     Route: 058
     Dates: start: 20190429
  2. PROLIA [Concomitant]
     Active Substance: DENOSUMAB
     Dosage: PROLIA SOL 60MG/ML
  3. KEVZARA [Suspect]
     Active Substance: SARILUMAB
     Dosage: 200 MG, QOW
     Route: 058
     Dates: start: 20200422
  4. PREDNISONE. [Concomitant]
     Active Substance: PREDNISONE
     Dosage: 60MG
  5. DILANTIN [Concomitant]
     Active Substance: PHENYTOIN
     Dosage: UNK

REACTIONS (2)
  - Product use in unapproved indication [Unknown]
  - White blood cell count decreased [Not Recovered/Not Resolved]

NARRATIVE: CASE EVENT DATE: 20190429
